FAERS Safety Report 13765172 (Version 1)
Quarter: 2017Q3

REPORT INFORMATION
  Report Type: Spontaneous
  Country: PT (occurrence: PT)
  Receive Date: 20170718
  Receipt Date: 20170718
  Transmission Date: 20171127
  Serious: Yes (Other)
  Sender: FDA-Public Use
  Company Number: PT-PFIZER INC-2319918

PATIENT
  Age: 22 Year
  Sex: Female
  Weight: 62 kg

DRUGS (12)
  1. ONDANSETRON HYDROCHLORIDE. [Concomitant]
     Active Substance: ONDANSETRON HYDROCHLORIDE
     Indication: PROPHYLAXIS
     Dosage: 0.53 MG, 8 MG/CYCLE
     Route: 042
     Dates: start: 20140404, end: 20140404
  2. CYCLOPHOSPHAMIDE. [Concomitant]
     Active Substance: CYCLOPHOSPHAMIDE
     Indication: PRODUCT USED FOR UNKNOWN INDICATION
     Dosage: UNK
     Route: 048
  3. DACARBAZINE. [Suspect]
     Active Substance: DACARBAZINE
     Indication: HODGKIN^S DISEASE
     Dosage: 40.66 MG, 610 MG/CYCLE
     Route: 042
     Dates: start: 20140404, end: 20140404
  4. DOXORUBICIN [Concomitant]
     Active Substance: DOXORUBICIN
     Indication: HODGKIN^S DISEASE
     Dosage: 2.66 MG, 40 MG/CYCLE
     Route: 042
     Dates: start: 20140404, end: 20140404
  5. HYDROCORTISONE SODIUM SUCCINATE [Concomitant]
     Active Substance: HYDROCORTISONE SODIUM SUCCINATE
     Indication: PROPHYLAXIS
     Dosage: 3.33 MG, 50 MG/CYCLE
     Route: 042
     Dates: start: 20140404, end: 20140404
  6. VINBLASTINE SULFATE. [Concomitant]
     Active Substance: VINBLASTINE SULFATE
     Indication: HODGKIN^S DISEASE
     Dosage: 0.66 MG, 10 MG/CYCLE
     Route: 042
     Dates: start: 20140404, end: 20140404
  7. BLEOMYCIN [Concomitant]
     Active Substance: BLEOMYCIN SULFATE
     Indication: HODGKIN^S DISEASE
     Dosage: 1.06 MG, 16 MG/CYCLE
     Route: 042
     Dates: start: 20140404, end: 20140404
  8. SODIUM CHLORIDE. [Concomitant]
     Active Substance: SODIUM CHLORIDE
     Indication: MEDICATION DILUTION
     Dosage: 1000 ML, UNK
     Route: 041
     Dates: start: 20140404
  9. GESTODENE [Concomitant]
     Active Substance: GESTODENE
     Indication: CONTRACEPTION
     Dosage: 1 DF, FREQ: 1 DAY
     Route: 048
  10. ETHINYLESTRADIOL [Concomitant]
     Active Substance: ETHINYL ESTRADIOL
     Indication: CONTRACEPTION
     Dosage: 1 DF, FREQ: 1 DAY
     Route: 048
  11. ONDANSETRON HYDROCHLORIDE. [Concomitant]
     Active Substance: ONDANSETRON HYDROCHLORIDE
     Dosage: UNK
     Route: 048
     Dates: start: 20140405
  12. PROCARBAZINE [Concomitant]
     Active Substance: PROCARBAZINE
     Indication: PRODUCT USED FOR UNKNOWN INDICATION
     Dosage: UNK

REACTIONS (3)
  - Rash papular [Recovered/Resolved]
  - Dyspnoea [Recovered/Resolved]
  - Pruritus [Recovered/Resolved]

NARRATIVE: CASE EVENT DATE: 20140404
